FAERS Safety Report 22598487 (Version 1)
Quarter: 2023Q2

REPORT INFORMATION
  Report Type: Spontaneous
  Country: CA (occurrence: CA)
  Receive Date: 20230614
  Receipt Date: 20230614
  Transmission Date: 20230722
  Serious: Yes (Other)
  Sender: FDA-Public Use
  Company Number: CA-CELLTRION INC.-2023CA008940

PATIENT

DRUGS (3)
  1. INFLECTRA [Suspect]
     Active Substance: INFLIXIMAB-DYYB
     Indication: Crohn^s disease
     Dosage: 400 MG, HOSPITAL START (W0, W2), W6 AND THEN EVERY 8 WEEKS(FIRST DOSE)
     Route: 042
     Dates: start: 20230324
  2. INFLECTRA [Suspect]
     Active Substance: INFLIXIMAB-DYYB
     Dosage: 400 MG, HOSPITAL START (W0, W2), W6 AND THEN EVERY 8 WEEKS(SECOND DOSE) (WEEK 2 INDUCTION DOSE)
     Route: 042
     Dates: start: 20230414
  3. PREDNISONE [Concomitant]
     Active Substance: PREDNISONE
     Dosage: 1 DF

REACTIONS (4)
  - Crohn^s disease [Unknown]
  - Hepatic enzyme increased [Unknown]
  - Off label use [Unknown]
  - Inappropriate schedule of product administration [Unknown]

NARRATIVE: CASE EVENT DATE: 20230324
